FAERS Safety Report 5789103-7 (Version None)
Quarter: 2008Q2

REPORT INFORMATION
  Report Type: 
  Country: None (occurrence: None)
  Receive Date: 20080626
  Receipt Date: 20080619
  Transmission Date: 20081010
  Serious: Yes (Other)
  Sender: FDA-Public Use
  Company Number: FR-BAYER-200820912GPV

PATIENT
  Age: 28 Year
  Sex: Female

DRUGS (3)
  1. CIPROFLOXACIN HCL [Suspect]
     Indication: PYELONEPHRITIS ACUTE
     Route: 048
     Dates: start: 20080528, end: 20080528
  2. TIAPRIDAL [Suspect]
     Indication: PAIN
     Dosage: UNIT DOSE: 100 MG
     Route: 048
     Dates: start: 20080526, end: 20080528
  3. ROCEPHIN [Concomitant]
     Indication: PYELONEPHRITIS
     Route: 065
     Dates: start: 20080524, end: 20080528

REACTIONS (1)
  - DYSKINESIA [None]
